FAERS Safety Report 24062638 (Version 1)
Quarter: 2024Q3

REPORT INFORMATION
  Report Type: Spontaneous
  Country: US (occurrence: US)
  Receive Date: 20240708
  Receipt Date: 20240708
  Transmission Date: 20241017
  Serious: Yes (Disabling, Other)
  Sender: APELLIS PHARMACEUTICALS
  Company Number: US-APELLIS-2024-APL-0000385

PATIENT

DRUGS (3)
  1. SYFOVRE [Suspect]
     Active Substance: PEGCETACOPLAN
     Indication: Dry age-related macular degeneration
     Dosage: 0.1 ML/ 15 MG OF SYFOVRE (ON LABEL)
     Dates: start: 20240103
  2. SYFOVRE [Suspect]
     Active Substance: PEGCETACOPLAN
     Dosage: 0.1 ML/ 15 MG OF SYFOVRE (ON LABEL)
     Dates: end: 20240228
  3. MINERALS\VITAMINS [Concomitant]
     Active Substance: MINERALS\VITAMINS
     Indication: Product used for unknown indication

REACTIONS (3)
  - Epiretinal membrane [Not Recovered/Not Resolved]
  - Visual impairment [Not Recovered/Not Resolved]
  - Retinal detachment [Recovering/Resolving]

NARRATIVE: CASE EVENT DATE: 20240424
